FAERS Safety Report 22947572 (Version 4)
Quarter: 2024Q1

REPORT INFORMATION
  Report Type: Report from Study
  Country: KR (occurrence: KR)
  Receive Date: 20230915
  Receipt Date: 20240305
  Transmission Date: 20240409
  Serious: Yes (Life-Threatening, Hospitalization, Other)
  Sender: FDA-Public Use
  Company Number: KR-CELLTRION INC.-2023KR017717

PATIENT

DRUGS (10)
  1. HERZUMA [Suspect]
     Active Substance: TRASTUZUMAB-PKRB
     Indication: Metastatic neoplasm
     Dosage: 390MG EVERY 3 WEEKS
     Route: 042
     Dates: start: 20230417, end: 20230830
  2. NERATINIB [Suspect]
     Active Substance: NERATINIB
     Indication: Neoplasm malignant
     Dosage: UNK
     Route: 048
     Dates: start: 20230417, end: 20230830
  3. NERATINIB [Suspect]
     Active Substance: NERATINIB
     Dosage: UNK
     Dates: end: 20230903
  4. PANTOPRAZOLE SODIUM [Concomitant]
     Active Substance: PANTOPRAZOLE SODIUM
     Indication: Nausea
     Dosage: 40 MG, QD
     Route: 042
     Dates: start: 20230906, end: 20230906
  5. LOPERAMIDE [Concomitant]
     Active Substance: LOPERAMIDE
     Indication: Diarrhoea
     Dosage: 8 MG, BID
     Route: 048
     Dates: start: 20230906
  6. GASTER [Concomitant]
     Active Substance: FAMOTIDINE
     Indication: Nausea
     Dosage: 20 MG, QD
     Route: 048
     Dates: start: 20230908
  7. BEECOM [Concomitant]
     Dosage: 1 DF, QD
     Route: 048
     Dates: start: 20230908
  8. FOLIC ACID [Concomitant]
     Active Substance: FOLIC ACID
     Dosage: 1 MG
     Route: 048
  9. PLASMA SOLUTION A [Concomitant]
     Dosage: 1 BAG
     Route: 042
     Dates: start: 20230906, end: 20230906
  10. SODIUM BICARBONATE [Concomitant]
     Active Substance: SODIUM BICARBONATE
     Indication: Metabolic acidosis
     Dosage: 80 MEQ, QD
     Route: 042
     Dates: start: 20230906, end: 20230906

REACTIONS (5)
  - Acute kidney injury [Recovered/Resolved]
  - Urinary retention [Unknown]
  - Decreased appetite [Unknown]
  - Vomiting [Unknown]
  - Nausea [Unknown]

NARRATIVE: CASE EVENT DATE: 20230901
